FAERS Safety Report 10440692 (Version 1)
Quarter: 2014Q3

REPORT INFORMATION
  Report Type: Spontaneous
  Country: US (occurrence: US)
  Receive Date: 20140909
  Receipt Date: 20140909
  Transmission Date: 20150326
  Serious: No
  Sender: FDA-Public Use
  Company Number: US-009507513-1409USA001249

PATIENT
  Sex: Female

DRUGS (1)
  1. NEXPLANON [Suspect]
     Active Substance: ETONOGESTREL
     Dosage: ONE/ THREE YEARS, ON THE LEFT ARM
     Route: 059

REACTIONS (1)
  - Implant site bruising [Unknown]

NARRATIVE: CASE EVENT DATE: 2014
